FAERS Safety Report 13442914 (Version 1)
Quarter: 2017Q2

REPORT INFORMATION
  Report Type: Spontaneous
  Country: US (occurrence: US)
  Receive Date: 20170413
  Receipt Date: 20170413
  Transmission Date: 20170830
  Serious: No
  Sender: FDA-Public Use
  Company Number: None

PATIENT
  Age: 70 Year
  Sex: Female

DRUGS (4)
  1. SIMPONI [Suspect]
     Active Substance: GOLIMUMAB
     Indication: HYPERLIPIDAEMIA
  2. SIMPONI [Suspect]
     Active Substance: GOLIMUMAB
     Indication: ESSENTIAL HYPERTENSION
  3. SIMPONI [Suspect]
     Active Substance: GOLIMUMAB
     Indication: MAJOR DEPRESSION
  4. SIMPONI [Suspect]
     Active Substance: GOLIMUMAB
     Indication: RHEUMATOID ARTHRITIS

REACTIONS (1)
  - Drug ineffective [None]

NARRATIVE: CASE EVENT DATE: 20161231
